FAERS Safety Report 15851943 (Version 2)
Quarter: 2019Q1

REPORT INFORMATION
  Report Type: Report from Study
  Country: None (occurrence: DE)
  Receive Date: 20190122
  Receipt Date: 20190222
  Transmission Date: 20190417
  Serious: Yes (Hospitalization)
  Sender: FDA-Public Use
  Company Number: DE-ABBVIE-19S-062-2627648-00

PATIENT
  Age: 77 Year
  Sex: Male

DRUGS (14)
  1. ALDACTONE [Concomitant]
     Active Substance: SPIRONOLACTONE
     Indication: PRODUCT USED FOR UNKNOWN INDICATION
     Route: 048
  2. TOREM [Concomitant]
     Active Substance: TORSEMIDE
     Indication: PRODUCT USED FOR UNKNOWN INDICATION
  3. BISOHEXAL [Concomitant]
     Active Substance: BISOPROLOL FUMARATE
     Indication: PRODUCT USED FOR UNKNOWN INDICATION
  4. TILIDIN COMP [Concomitant]
     Active Substance: NALOXONE HYDROCHLORIDE\TILIDINE HYDROCHLORIDE
     Indication: PRODUCT USED FOR UNKNOWN INDICATION
     Dosage: 50/4MG
  5. FERRO-SANOL DUODENAL [Concomitant]
     Active Substance: FERROUS GLYCINE SULFATE
     Indication: PRODUCT USED FOR UNKNOWN INDICATION
  6. ATORVASTATIN PUREN [Concomitant]
     Indication: PRODUCT USED FOR UNKNOWN INDICATION
  7. DUODOPA [Suspect]
     Active Substance: CARBIDOPA\LEVODOPA
     Route: 050
     Dates: start: 20181223
  8. PANTOPRAZOL [Concomitant]
     Active Substance: PANTOPRAZOLE SODIUM
     Indication: PRODUCT USED FOR UNKNOWN INDICATION
  9. AMLODIPIN [Concomitant]
     Active Substance: AMLODIPINE BESYLATE
     Indication: PRODUCT USED FOR UNKNOWN INDICATION
  10. DUODOPA [Suspect]
     Active Substance: CARBIDOPA\LEVODOPA
     Indication: PARKINSON^S DISEASE
     Dosage: MD 7.5 ML; CRD 2.7 ML/HR; ED 0.5 ML
     Route: 050
     Dates: start: 20181218, end: 201812
  11. MOVICOL V [Concomitant]
     Indication: PRODUCT USED FOR UNKNOWN INDICATION
  12. DIGIMERCK [Concomitant]
     Active Substance: DIGITOXIN
     Indication: PRODUCT USED FOR UNKNOWN INDICATION
  13. CANDESARTAN. [Concomitant]
     Active Substance: CANDESARTAN
     Indication: PRODUCT USED FOR UNKNOWN INDICATION
  14. CLOZAPIN [Concomitant]
     Active Substance: CLOZAPINE
     Indication: PRODUCT USED FOR UNKNOWN INDICATION

REACTIONS (15)
  - Altered state of consciousness [Unknown]
  - Oedema peripheral [Recovering/Resolving]
  - Anaemia macrocytic [Unknown]
  - General physical health deterioration [Recovering/Resolving]
  - Aortic aneurysm [Unknown]
  - Haemoglobin decreased [Recovering/Resolving]
  - Coronary artery disease [Unknown]
  - Pleural effusion [Recovering/Resolving]
  - Respiratory failure [Unknown]
  - Iron deficiency [Unknown]
  - Cardiac disorder [Recovering/Resolving]
  - Cardiac failure [Unknown]
  - Peripheral artery aneurysm [Unknown]
  - Urinary tract infection [Unknown]
  - Dyspnoea [Recovered/Resolved]

NARRATIVE: CASE EVENT DATE: 201812
